FAERS Safety Report 8277793-9 (Version None)
Quarter: 2012Q1

REPORT INFORMATION
  Report Type: 
  Country: None (occurrence: None)
  Receive Date: 20120312
  Receipt Date: 20120203
  Transmission Date: 20120608
  Serious: No
  Sender: FDA-Public Use
  Company Number: 2012SP006640

PATIENT
  Sex: Female

DRUGS (1)
  1. SAPHRIS [Suspect]
     Indication: BIPOLAR DISORDER
     Dosage: PO
     Route: 048
     Dates: start: 20120202, end: 20120203

REACTIONS (4)
  - DISORIENTATION [None]
  - INCORRECT ROUTE OF DRUG ADMINISTRATION [None]
  - MUSCLE TWITCHING [None]
  - DIZZINESS [None]
